FAERS Safety Report 10239486 (Version 1)
Quarter: 2014Q1

REPORT INFORMATION
  Report Type: Spontaneous
  Country: US (occurrence: None)
  Receive Date: 20140306
  Receipt Date: 20140306
  Transmission Date: 20141002
  Serious: Yes (Other)
  Sender: FDA-Public Use
  Company Number: 163-21880-13092692

PATIENT
  Age: 73 Year
  Sex: Female

DRUGS (11)
  1. REVLIMID (LENALIDOMIDE) (10 MILLIGRAM, CAPSULES) [Suspect]
     Indication: PLASMA CELL MYELOMA
     Route: 048
     Dates: start: 201004
  2. PHENYTOIN (PHENYTOIN) (UNKNOWN) (PHENYTOIN) [Concomitant]
  3. NEURONTIN (GABAPENTIN) (UNKNOWN) [Concomitant]
  4. HYDROCODONE / APAP (VICODIN) (UNKNOWN) [Concomitant]
  5. AMLODIPINE (AMLODIPINE) (UNKNOWN) [Concomitant]
  6. LISINOPRIL (LISINOPRIL) (UNKNOWN) [Concomitant]
  7. SIMVASTATIN (SIMVASTATIN) (UNKNOWN) [Concomitant]
  8. LEXAPRO (ESCITALOPRAM OXALATE) (UNKNOWN) [Concomitant]
  9. LOMOTIL (LOMOTIL) (UNKNOWN) [Concomitant]
  10. DEXAMETHASONE (DEXAMETHASONE) (UNKNOWN) [Concomitant]
  11. LEVOTHYROXIN (LEVOTHYROXINE SODIUM) (UNKNOWN) [Concomitant]

REACTIONS (1)
  - Thrombosis [None]
